FAERS Safety Report 5655526-X (Version None)
Quarter: 2008Q1

REPORT INFORMATION
  Report Type: 
  Country: None (occurrence: None)
  Receive Date: 20080307
  Receipt Date: 20080228
  Transmission Date: 20080703
  Serious: Yes (Hospitalization)
  Sender: FDA-Public Use
  Company Number: GB-ROCHE-536449

PATIENT
  Age: 67 Year
  Sex: Male
  Weight: 106 kg

DRUGS (13)
  1. ORLISTAT [Suspect]
     Indication: OBESITY
     Route: 048
     Dates: start: 20070618, end: 20071126
  2. CLOPIDOGREL [Concomitant]
     Dosage: START DATE REPORTED AS ^DO^ FREQUENCY REPORTED AS ^DAILY^ DRUG STARTED 10 YEARS AGO FOR AN UNKNOWN +
     Route: 048
  3. MUCODYNE [Concomitant]
     Dosage: DRUG REPORTED AS ^NUCODYNE^ DRUG STARTED 5 YEARS AGO FOR AN UNKNOWN INDICATION
     Route: 048
  4. OMEPRAZOLE [Concomitant]
     Dosage: DRUG STARTED 5 YEARS AGO FOR AN UNKNOWN INDICATION
     Route: 048
  5. FERROUS SULFATE TAB [Concomitant]
     Dosage: DRUG REPORTED AS ^SERROUSSULPHATE^ DRUG STARTED 5 YEARS AGO FOR AN UNKNOWN INDICATION
     Route: 048
  6. LIPITOR [Concomitant]
     Dosage: DRUG STARTED 5 YEARS AGO FOR AN UNKNOWN INDICATION
     Route: 048
  7. AMLODIPINE [Concomitant]
     Dosage: DRUG STARTED 10 YEARS AGO FOR AN UNKNOWN INDICATION FREQUENCY REPORTED AS ^DAILY^
     Route: 048
     Dates: start: 20071125
  8. BUMETANIDE [Concomitant]
     Dosage: DRUG STARTED 5 YEARS AGO FOR AN UNKNOWN INDICATION
     Route: 048
  9. 1 CONCOMITANT DRUG [Concomitant]
     Dosage: DRUG REPORTED AS ^SPRAY^ DRUG STARTED 10 YEARS AGO FOR AN UNKNOWN INDICATION
     Route: 048
  10. NICORANDIL [Concomitant]
     Dosage: DRUG STARTED 5 YEARS AGO FOR AN UNKNOWN INDICATION
     Route: 048
  11. ASPIRIN [Concomitant]
     Dosage: DRUG STARTED 17 YEARS AGO FOR AN UNKNOWN INDICATION
     Route: 048
  12. COMBIVENT [Concomitant]
     Dosage: DRUG STARTED 2 MONTHS AGO FOR AN UNKNOWN INDICATION
     Route: 048
  13. BISOPROLOL FUMARATE [Concomitant]
     Dosage: FREQUENCY REPORTED AS ^DAILY^ DRUG STARTED 1 MONTH AGO FOR AN UNKNOWN INDICATION
     Route: 048
     Dates: start: 20071125

REACTIONS (3)
  - CARDIAC FAILURE [None]
  - HAEMORRHAGE [None]
  - PERICARDIAL HAEMORRHAGE [None]
